FAERS Safety Report 16720135 (Version 1)
Quarter: 2019Q3

REPORT INFORMATION
  Report Type: Spontaneous
  Country: US (occurrence: US)
  Receive Date: 20190702
  Receipt Date: 20190702
  Transmission Date: 20191005
  Serious: Yes (Other)
  Sender: FDA-Public Use
  Company Number: None

PATIENT
  Age: 42 Year
  Sex: Male

DRUGS (1)
  1. GLOBULIN, IMMUNE [Suspect]
     Active Substance: HUMAN IMMUNOGLOBULIN G
     Route: 042
     Dates: start: 20190701, end: 20190701

REACTIONS (7)
  - Hyperhidrosis [None]
  - Cough [None]
  - Dyspnoea [None]
  - Laryngeal oedema [None]
  - Wheezing [None]
  - Chest discomfort [None]
  - Tachycardia [None]

NARRATIVE: CASE EVENT DATE: 20190701
